FAERS Safety Report 24657821 (Version 1)
Quarter: 2024Q4

REPORT INFORMATION
  Report Type: Spontaneous
  Country: US (occurrence: US)
  Receive Date: 20241125
  Receipt Date: 20241125
  Transmission Date: 20250114
  Serious: Yes (Other)
  Sender: CHEPLAPHARM
  Company Number: US-CHEPLA-2024014652

PATIENT
  Age: 10 Month
  Sex: Male

DRUGS (5)
  1. OLANZAPINE [Suspect]
     Active Substance: OLANZAPINE
     Indication: Delirium
  2. ACETAMINOPHEN [Suspect]
     Active Substance: ACETAMINOPHEN
  3. LORAZEPAM [Suspect]
     Active Substance: LORAZEPAM
  4. MORPHINE [Suspect]
     Active Substance: MORPHINE
  5. MIDAZOLAM [Suspect]
     Active Substance: MIDAZOLAM

REACTIONS (6)
  - Neuroleptic malignant syndrome [Unknown]
  - Sepsis [Unknown]
  - Shock [Unknown]
  - Acute kidney injury [Unknown]
  - Multiple organ dysfunction syndrome [Unknown]
  - Off label use [Recovered/Resolved]
